FAERS Safety Report 8539983-7 (Version None)
Quarter: 2012Q2

REPORT INFORMATION
  Report Type: 
  Country: None (occurrence: None)
  Receive Date: 20120412
  Receipt Date: 20090311
  Transmission Date: 20120825
  Serious: Yes (Other)
  Sender: FDA-Public Use
  Company Number: PHEH2009US02567

PATIENT
  Sex: Female

DRUGS (2)
  1. AREDIA (DISODIUM PAMIDRONATE) SOLUTION FOR INFUSION [Suspect]
     Dosage: INJECTION NOS
  2. ZOMETA [Suspect]
     Dosage: INJECTION NOS

REACTIONS (4)
  - OSTEONECROSIS [None]
  - DISABILITY [None]
  - PAIN [None]
  - INJURY [None]
